FAERS Safety Report 4531148-9 (Version None)
Quarter: 2004Q4

REPORT INFORMATION
  Report Type: 
  Country: None (occurrence: None)
  Receive Date: 20041216
  Receipt Date: 20041208
  Transmission Date: 20050328
  Serious: Yes (Hospitalization)
  Sender: FDA-Public Use
  Company Number: 2004CG02479

PATIENT
  Age: 52 Year
  Sex: Female
  Weight: 58 kg

DRUGS (10)
  1. ATACAND [Suspect]
     Dates: start: 20020101, end: 20040921
  2. ZOCOR [Suspect]
     Dates: start: 20020101, end: 20040921
  3. VIOXX [Suspect]
     Dosage: 1 DF DAILY PO
     Route: 048
     Dates: start: 20030801, end: 20041015
  4. ENBREL [Suspect]
     Dosage: 1 DF DAILY PO
     Route: 048
     Dates: start: 20030801, end: 20041015
  5. ENBREL [Suspect]
     Dosage: 25 MG BIWK SQ
     Route: 058
     Dates: start: 20030718, end: 20040921
  6. ESTROGEL [Suspect]
     Dates: start: 20020101, end: 20040921
  7. NOVATREX ^LEDERLE^ [Suspect]
     Dosage: 7.5 MG WEEK
     Dates: start: 20030601, end: 20040921
  8. FOSAMAX [Concomitant]
  9. CACIT D3 [Concomitant]
  10. DUPHASTON [Concomitant]

REACTIONS (6)
  - ACUTE CORONARY SYNDROME [None]
  - ANXIETY [None]
  - BLOOD PRESSURE SYSTOLIC INCREASED [None]
  - CORONARY ARTERY ATHEROSCLEROSIS [None]
  - CORONARY ARTERY STENOSIS [None]
  - EJECTION FRACTION DECREASED [None]
